FAERS Safety Report 25877297 (Version 1)
Quarter: 2025Q4

REPORT INFORMATION
  Report Type: Spontaneous
  Country: BR (occurrence: BR)
  Receive Date: 20251003
  Receipt Date: 20251003
  Transmission Date: 20260118
  Serious: Yes (Other)
  Sender: MACLEODS
  Company Number: BR-MLMSERVICE-20250915-PI647897-00130-1

PATIENT

DRUGS (3)
  1. TENOFOVIR [Suspect]
     Active Substance: TENOFOVIR
     Indication: Antiretroviral therapy
     Dosage: TENOFOVIR (TDF) 300 MG, 1 TABLET OF TDF, IN A SINGLE DAILY DOSE.
     Route: 065
  2. DOLUTEGRAVIR\LAMIVUDINE [Suspect]
     Active Substance: DOLUTEGRAVIR\LAMIVUDINE
     Indication: Antiretroviral therapy
     Dosage: LAMI 300 MG + DOLU 50 MG, WITH A DOSAGE OF 1 2-IN-1 TAB OF DT/3TC IN A SINGLE DAILY DOSE
     Route: 065
  3. IMPLANON [Suspect]
     Active Substance: ETONOGESTREL
     Indication: Contraception
     Dosage: ETONOGESTREL CONTRACEPTIVE IMPLANT (IMPLANON)
     Route: 058
     Dates: start: 20221018, end: 20240305

REACTIONS (2)
  - Pregnancy with implant contraceptive [Unknown]
  - Drug interaction [Unknown]

NARRATIVE: CASE EVENT DATE: 20240201
